FAERS Safety Report 17031187 (Version 1)
Quarter: 2019Q4

REPORT INFORMATION
  Report Type: Spontaneous
  Country: US (occurrence: US)
  Receive Date: 20191114
  Receipt Date: 20191114
  Transmission Date: 20200122
  Serious: No
  Sender: FDA-Public Use
  Company Number: US-PFIZER INC-2019487001

PATIENT
  Age: 79 Year
  Sex: Male

DRUGS (2)
  1. DICLOFENAC EPOLAMINE [Suspect]
     Active Substance: DICLOFENAC EPOLAMINE
     Indication: BACK INJURY
     Dosage: 180 MG, UNK
     Route: 062
  2. DICLOFENAC EPOLAMINE [Suspect]
     Active Substance: DICLOFENAC EPOLAMINE
     Indication: SPINAL OPERATION

REACTIONS (3)
  - Fear [Unknown]
  - Product residue present [Unknown]
  - Mental disorder [Unknown]
